FAERS Safety Report 8058914-X (Version None)
Quarter: 2012Q1

REPORT INFORMATION
  Report Type: 
  Country: None (occurrence: None)
  Receive Date: 20120120
  Receipt Date: 20110928
  Transmission Date: 20120608
  Serious: No
  Sender: FDA-Public Use
  Company Number: US-BRISTOL-MYERS SQUIBB COMPANY-16108110

PATIENT
  Age: 57 Year
  Sex: Female
  Weight: 63 kg

DRUGS (1)
  1. YERVOY [Suspect]
     Indication: MALIGNANT MELANOMA
     Dosage: 1ST INF  TO GET 3 MORE INF EVERY 3 WEEKS
     Dates: start: 20110927

REACTIONS (2)
  - DRUG ADMINISTRATION ERROR [None]
  - INFLUENZA LIKE ILLNESS [None]
